FAERS Safety Report 6104038-8 (Version None)
Quarter: 2009Q1

REPORT INFORMATION
  Report Type: 
  Country: None (occurrence: None)
  Receive Date: 20090305
  Receipt Date: 20090224
  Transmission Date: 20090719
  Serious: Yes (Hospitalization)
  Sender: FDA-Public Use
  Company Number: IT-PFIZER INC-2009175612

PATIENT

DRUGS (5)
  1. LYRICA [Suspect]
     Indication: POST HERPETIC NEURALGIA
     Dosage: 150 MG, 1X/DAY
     Route: 048
     Dates: start: 20090216, end: 20090218
  2. LOSAZID [Concomitant]
     Route: 048
  3. DILATREND [Concomitant]
     Dosage: 25 MG, UNK
     Route: 048
  4. WARFARIN SODIUM [Concomitant]
     Route: 048
  5. LASIX [Concomitant]
     Dosage: 25 MG, UNK
     Route: 048

REACTIONS (3)
  - COORDINATION ABNORMAL [None]
  - MOVEMENT DISORDER [None]
  - MUSCULAR WEAKNESS [None]
